FAERS Safety Report 21289935 (Version 1)
Quarter: 2022Q3

REPORT INFORMATION
  Report Type: Spontaneous
  Country: CN (occurrence: None)
  Receive Date: 20220902
  Receipt Date: 20220902
  Transmission Date: 20221026
  Serious: Yes (Other)
  Sender: FDA-Public Use
  Company Number: 2022A301623

PATIENT
  Age: 53 Year
  Sex: Female

DRUGS (3)
  1. OSIMERTINIB [Suspect]
     Active Substance: OSIMERTINIB
     Indication: Non-small cell lung cancer stage IV
     Route: 048
  2. GEFITINIB [Suspect]
     Active Substance: GEFITINIB
     Indication: Non-small cell lung cancer stage IV
     Route: 048
  3. PEMETREXED/CARBOPLATIN [Concomitant]
     Indication: Chemotherapy
     Dosage: PEMETREXED 500 MG/M2 IN A 3-WEEK CYCLE FOR UP TO FOUR CYCLES

REACTIONS (5)
  - Malignant neoplasm progression [Recovering/Resolving]
  - Acquired gene mutation [Unknown]
  - Drug resistance [Unknown]
  - Metastases to lung [Recovering/Resolving]
  - Metastases to central nervous system [Recovered/Resolved]
